FAERS Safety Report 7958255-2 (Version None)
Quarter: 2011Q4

REPORT INFORMATION
  Report Type: 
  Country: None (occurrence: None)
  Receive Date: 20111205
  Receipt Date: 20111130
  Transmission Date: 20120403
  Serious: Yes (Hospitalization, Other)
  Sender: FDA-Public Use
  Company Number: PHHY2011FR105551

PATIENT
  Sex: Female

DRUGS (4)
  1. METFORMIN HCL [Suspect]
     Indication: TYPE 2 DIABETES MELLITUS
     Dosage: 500 MG, UNK
     Dates: start: 20090101
  2. METFORMIN HYDROCHLORIDE [Suspect]
     Indication: TYPE 2 DIABETES MELLITUS
     Dosage: 1 DF (VILD 50 MG, METF 1000 MG), BID
     Dates: start: 20090101, end: 20111010
  3. METFORMIN HCL [Suspect]
     Dosage: 850 MG, TID
     Dates: start: 20111010, end: 20111013
  4. NOVOLOG MIX 70/30 [Concomitant]
     Dosage: 30 IU, PER DAY

REACTIONS (8)
  - ALANINE AMINOTRANSFERASE INCREASED [None]
  - DIZZINESS [None]
  - ASPARTATE AMINOTRANSFERASE INCREASED [None]
  - GAMMA-GLUTAMYLTRANSFERASE INCREASED [None]
  - PARAESTHESIA [None]
  - HEPATITIS ACUTE [None]
  - NAUSEA [None]
  - VOMITING [None]
